FAERS Safety Report 20422921 (Version 2)
Quarter: 2022Q1

REPORT INFORMATION
  Report Type: Spontaneous
  Country: US (occurrence: US)
  Receive Date: 20220203
  Receipt Date: 20220214
  Transmission Date: 20220424
  Serious: Yes (Other)
  Sender: FDA-Public Use
  Company Number: US-PFIZER INC-202200139646

PATIENT
  Sex: Female

DRUGS (2)
  1. DEPO-MEDROL [Suspect]
     Active Substance: METHYLPREDNISOLONE ACETATE
     Indication: Adrenal insufficiency
     Dosage: UNK, 3X/DAY, (100MG /5ML)
  2. DEPO-MEDROL [Suspect]
     Active Substance: METHYLPREDNISOLONE ACETATE
     Dosage: UNK, 3X/DAY

REACTIONS (5)
  - Cataract [Unknown]
  - Eye disorder [Unknown]
  - Reading disorder [Unknown]
  - Product supply issue [Unknown]
  - Product dose omission issue [Unknown]
